FAERS Safety Report 7892125-3 (Version None)
Quarter: 2011Q4

REPORT INFORMATION
  Report Type: 
  Country: None (occurrence: None)
  Receive Date: 20111103
  Receipt Date: 20110815
  Transmission Date: 20120403
  Serious: No
  Sender: FDA-Public Use
  Company Number: US-AMGEN-USASP2011041750

PATIENT
  Age: 65 Year
  Sex: Female

DRUGS (9)
  1. NAPROSYN [Concomitant]
  2. METHOTREXATE [Concomitant]
     Dosage: 25 MG, UNK
  3. FOLIC ACID [Concomitant]
  4. GLUCOSAMINE [Concomitant]
  5. ENBREL [Suspect]
     Indication: RHEUMATOID ARTHRITIS
     Dosage: 50 MG, QWK
     Dates: start: 20070909
  6. MULTIVITAMIN                       /00097801/ [Concomitant]
  7. METHYLSULFONYLMETHANE [Concomitant]
  8. FISH OIL [Concomitant]
  9. CALCIUM [Concomitant]

REACTIONS (4)
  - EXOSTOSIS [None]
  - PAIN IN EXTREMITY [None]
  - ARTHRALGIA [None]
  - THERAPEUTIC RESPONSE DECREASED [None]
